FAERS Safety Report 6484689-1 (Version None)
Quarter: 2009Q4

REPORT INFORMATION
  Report Type: 
  Country: None (occurrence: None)
  Receive Date: 20091209
  Receipt Date: 20090731
  Transmission Date: 20100525
  Serious: No
  Sender: FDA-Public Use
  Company Number: US-AMGEN-KDL349829

PATIENT
  Sex: Male
  Weight: 81.7 kg

DRUGS (4)
  1. ENBREL [Suspect]
     Indication: PSORIASIS
     Route: 058
     Dates: start: 20090409
  2. BETAMETHASONE [Concomitant]
  3. CALCIPOTRIENE [Concomitant]
  4. IBUPROFEN [Concomitant]

REACTIONS (1)
  - INJECTION SITE WARMTH [None]
